FAERS Safety Report 6061188-2 (Version None)
Quarter: 2009Q1

REPORT INFORMATION
  Report Type: 
  Country: None (occurrence: None)
  Receive Date: 20090202
  Receipt Date: 20090121
  Transmission Date: 20090719
  Serious: Yes (Hospitalization, Other)
  Sender: FDA-Public Use
  Company Number: US-PFIZER INC-2008152912

PATIENT
  Sex: Male
  Weight: 127 kg

DRUGS (9)
  1. TIKOSYN [Suspect]
     Indication: ATRIAL FIBRILLATION
     Dosage: UNK
     Dates: start: 20080401
  2. SPIRONOLACTONE [Concomitant]
     Dosage: UNK
  3. WARFARIN [Concomitant]
     Dosage: UNK
  4. LEVOTHYROXINE [Concomitant]
     Dosage: UNK
  5. COREG [Concomitant]
     Dosage: UNK
  6. MAGNESIUM [Concomitant]
     Dosage: UNK
  7. VITAMIN D [Concomitant]
     Dosage: UNK
  8. MOMETASONE FUROATE [Concomitant]
     Dosage: UNK
  9. MONTELUKAST [Concomitant]
     Dosage: UNK

REACTIONS (6)
  - ARRHYTHMIA [None]
  - BRONCHITIS [None]
  - IMPLANTABLE DEFIBRILLATOR MALFUNCTION [None]
  - INTERNATIONAL NORMALISED RATIO INCREASED [None]
  - SINUSITIS [None]
  - THERMAL BURN [None]
